FAERS Safety Report 6453693-1 (Version None)
Quarter: 2009Q4

REPORT INFORMATION
  Report Type: 
  Country: None (occurrence: None)
  Receive Date: 20091123
  Receipt Date: 20091123
  Transmission Date: 20100525
  Serious: Yes (Other)
  Sender: FDA-Public Use
  Company Number: None

PATIENT
  Age: 46 Year
  Sex: Female
  Weight: 52 kg

DRUGS (2)
  1. CYMBALTA [Suspect]
     Indication: INTERVERTEBRAL DISC DEGENERATION
     Dates: start: 20090201, end: 20091117
  2. CYMBALTA [Suspect]
     Indication: PAIN
     Dates: start: 20090201, end: 20091117

REACTIONS (6)
  - NAUSEA [None]
  - PARAESTHESIA [None]
  - RESTLESS LEGS SYNDROME [None]
  - SUICIDAL IDEATION [None]
  - SYNCOPE [None]
  - WITHDRAWAL SYNDROME [None]
